FAERS Safety Report 8965673 (Version 2)
Quarter: 2013Q2

REPORT INFORMATION
  Report Type: Spontaneous
  Country: US (occurrence: None)
  Receive Date: 20121207
  Receipt Date: 20130404
  Transmission Date: 20140414
  Serious: Yes (Hospitalization, Other)
  Sender: FDA-Public Use
  Company Number: ADR-2012-02180

PATIENT
  Sex: Male

DRUGS (1)
  1. LIORESAL INTRATHECAL (BACLOFEN INJECTION) [Suspect]
     Indication: MUSCLE SPASTICITY

REACTIONS (9)
  - Delirium [None]
  - Drug withdrawal syndrome [None]
  - Overdose [None]
  - Device computer issue [None]
  - Incorrect dose administered by device [None]
  - Lethargy [None]
  - Cognitive disorder [None]
  - Underdose [None]
  - Device issue [None]
